FAERS Safety Report 10595888 (Version 2)
Quarter: 2014Q4

REPORT INFORMATION
  Report Type: Spontaneous
  Country: GB (occurrence: GB)
  Receive Date: 20141120
  Receipt Date: 20141120
  Transmission Date: 20150529
  Serious: Yes (Death, Life-Threatening)
  Sender: FDA-Public Use
  Company Number: GB-BAYER-2014-080609

PATIENT
  Age: 56 Year
  Sex: Male
  Weight: 50 kg

DRUGS (3)
  1. AMOXICILLIN. [Concomitant]
     Active Substance: AMOXICILLIN
  2. SEPTRIN [Concomitant]
     Active Substance: SULFAMETHOXAZOLE\TRIMETHOPRIM
  3. GADOVIST 1.0 MMOL/ML SOLUTION FOR INJECTION [Suspect]
     Active Substance: GADOBUTROL
     Indication: NUCLEAR MAGNETIC RESONANCE IMAGING BRAIN
     Dosage: DAILY DOSE 7.5 ML
     Route: 042
     Dates: start: 20140523, end: 20140523

REACTIONS (4)
  - Vomiting [None]
  - Cough [Unknown]
  - Death [Fatal]
  - Cardiac arrest [None]

NARRATIVE: CASE EVENT DATE: 20140523
